FAERS Safety Report 18713410 (Version 3)
Quarter: 2021Q1

REPORT INFORMATION
  Report Type: Report from Study
  Country: MX (occurrence: MX)
  Receive Date: 20210107
  Receipt Date: 20210120
  Transmission Date: 20210419
  Serious: Yes (Other)
  Sender: FDA-Public Use
  Company Number: PHHY2017MX064128

PATIENT
  Sex: Female
  Weight: 73 kg

DRUGS (4)
  1. CO?DIOVAN [Suspect]
     Active Substance: HYDROCHLOROTHIAZIDE\VALSARTAN
     Indication: HYPERTENSION
     Dosage: 1 DF, QD
     Route: 048
     Dates: start: 2010
  2. CO?DIOVAN [Suspect]
     Active Substance: HYDROCHLOROTHIAZIDE\VALSARTAN
     Dosage: 1 DF, QD
     Route: 048
  3. CO?DIOVAN [Suspect]
     Active Substance: HYDROCHLOROTHIAZIDE\VALSARTAN
     Dosage: 1 DF
     Route: 065
  4. CO?DIOVAN [Suspect]
     Active Substance: HYDROCHLOROTHIAZIDE\VALSARTAN
     Dosage: 1 DF, QD (HYDROCHLOROTHIAZIDE 25MG, VALSARTAN 320MG)(15 DAYS AGO APPROXIMATELY)
     Route: 048
     Dates: start: 2012

REACTIONS (10)
  - Pyrexia [Unknown]
  - Hypertension [Unknown]
  - Traumatic lung injury [Unknown]
  - Pulmonary oedema [Unknown]
  - Osteoporosis [Unknown]
  - Lung disorder [Unknown]
  - Hepatitis B [Unknown]
  - Pancreatitis [Unknown]
  - Procedural complication [Unknown]
  - Peripheral swelling [Unknown]
